FAERS Safety Report 5155869-2 (Version None)
Quarter: 2006Q4

REPORT INFORMATION
  Report Type: 
  Country: None (occurrence: None)
  Receive Date: 20061122
  Receipt Date: 20061115
  Transmission Date: 20070319
  Serious: Yes (Hospitalization)
  Sender: FDA-Public Use
  Company Number: ES-BAYER-200615793GDS

PATIENT
  Age: 58 Year
  Sex: Male

DRUGS (4)
  1. LEVITRA [Suspect]
     Indication: PENIS DISORDER
     Route: 048
     Dates: start: 20060730, end: 20060730
  2. ANDRODERM [Suspect]
     Indication: PENIS DISORDER
     Dosage: UNIT DOSE: 5 MG
     Route: 065
     Dates: start: 20060729, end: 20060729
  3. VERNIES [Concomitant]
     Indication: MYOCARDIAL INFARCTION
     Route: 065
  4. ADIRO 300 [Concomitant]
     Indication: MYOCARDIAL INFARCTION
     Route: 065

REACTIONS (2)
  - CELLULITIS [None]
  - LYMPHANGITIS [None]
